FAERS Safety Report 6030997-8 (Version None)
Quarter: 2009Q1

REPORT INFORMATION
  Report Type: 
  Country: None (occurrence: None)
  Receive Date: 20090106
  Receipt Date: 20090106
  Transmission Date: 20090719
  Serious: No
  Sender: FDA-Public Use
  Company Number: None

PATIENT
  Age: 55 Year
  Sex: Male
  Weight: 113.3993 kg

DRUGS (1)
  1. PROVIGIL [Suspect]
     Indication: NARCOLEPSY
     Dosage: 300 MG 1 1/2 TABLETS TWICE A DAY PO
     Route: 048
     Dates: start: 20051110, end: 20080423

REACTIONS (2)
  - ARTHRALGIA [None]
  - LOSS OF EMPLOYMENT [None]
